FAERS Safety Report 17039149 (Version 8)
Quarter: 2020Q3

REPORT INFORMATION
  Report Type: Spontaneous
  Country: US (occurrence: US)
  Receive Date: 20191115
  Receipt Date: 20200908
  Transmission Date: 20201102
  Serious: Yes (Hospitalization, Other)
  Sender: FDA-Public Use
  Company Number: US-SA-2019SA310685

PATIENT

DRUGS (4)
  1. BUMEX [Concomitant]
     Active Substance: BUMETANIDE
     Indication: FLUID REPLACEMENT
     Dosage: 4 MG, QD
  2. DUPIXENT [Suspect]
     Active Substance: DUPILUMAB
     Indication: DERMATITIS ATOPIC
     Dosage: 300 MG, QOW
     Route: 058
     Dates: start: 20191003, end: 202001
  3. PREDNISONE. [Suspect]
     Active Substance: PREDNISONE
  4. DUPIXENT [Suspect]
     Active Substance: DUPILUMAB
     Indication: ASTHMA
     Dosage: 300 MG QOW
     Route: 058
     Dates: start: 2020

REACTIONS (16)
  - Pneumonia [Recovering/Resolving]
  - Influenza [Recovering/Resolving]
  - Asthenia [Recovering/Resolving]
  - COVID-19 [Recovered/Resolved]
  - Asthma [Recovering/Resolving]
  - Diabetes mellitus [Recovering/Resolving]
  - SARS-CoV-2 test positive [Recovered/Resolved]
  - Dyspnoea [Recovering/Resolving]
  - Nausea [Recovered/Resolved]
  - Skin discolouration [Unknown]
  - Pleural effusion [Recovering/Resolving]
  - Cardiac disorder [Unknown]
  - Oedema [Unknown]
  - Pyrexia [Recovering/Resolving]
  - Oral papule [Recovered/Resolved]
  - Mass [Unknown]

NARRATIVE: CASE EVENT DATE: 201910
